FAERS Safety Report 10280983 (Version 2)
Quarter: 2014Q4

REPORT INFORMATION
  Report Type: Spontaneous
  Country: BR (occurrence: BR)
  Receive Date: 20140707
  Receipt Date: 20141005
  Transmission Date: 20150528
  Serious: Yes (Hospitalization)
  Sender: FDA-Public Use
  Company Number: BR-BRISTOL-MYERS SQUIBB COMPANY-21150743

PATIENT
  Age: 57 Year
  Sex: Male

DRUGS (9)
  1. LOSARTAN [Concomitant]
     Active Substance: LOSARTAN
     Indication: STENT PLACEMENT
  2. PRAVASTATIN SODIUM. [Concomitant]
     Active Substance: PRAVASTATIN SODIUM
     Indication: BLOOD CHOLESTEROL INCREASED
  3. AMARYL [Concomitant]
     Active Substance: GLIMEPIRIDE
  4. PIOGLITAZONE HCL [Concomitant]
     Active Substance: PIOGLITAZONE
     Indication: DIABETES MELLITUS
  5. GLIFAGE XR [Suspect]
     Active Substance: METFORMIN HYDROCHLORIDE
  6. GLICLAZIDE [Concomitant]
     Active Substance: GLICLAZIDE
     Dosage: MR
     Dates: start: 201312
  7. CEDUR [Concomitant]
     Active Substance: BEZAFIBRATE
     Dosage: RETARD
     Dates: start: 201312
  8. KOMBIGLYZE XR [Suspect]
     Active Substance: METFORMIN HYDROCHLORIDE\SAXAGLIPTIN HYDROCHLORIDE
     Indication: DIABETES MELLITUS
     Dosage: 1 DF=2.5/1000MG
     Route: 048
     Dates: start: 20140310
  9. ASA [Concomitant]
     Active Substance: ASPIRIN

REACTIONS (7)
  - Arterial stent insertion [Unknown]
  - Laboratory test abnormal [Unknown]
  - Coronary arterial stent insertion [Unknown]
  - Urethral injury [Recovering/Resolving]
  - Medication error [Unknown]
  - Urinary bladder haemorrhage [Recovered/Resolved]
  - Medication residue present [Unknown]

NARRATIVE: CASE EVENT DATE: 2012
